FAERS Safety Report 5285551-2 (Version None)
Quarter: 2007Q1

REPORT INFORMATION
  Report Type: 
  Country: None (occurrence: None)
  Receive Date: 20061229
  Receipt Date: 20061101
  Transmission Date: 20070707
  Serious: Yes (Other)
  Sender: FDA-Public Use
  Company Number: 2006UW21122

PATIENT
  Age: 48 Year
  Sex: Male
  Weight: 108.86 kg

DRUGS (2)
  1. CRESTOR [Suspect]
     Indication: BLOOD CHOLESTEROL INCREASED
  2. IMITREX ^CERENEX^ [Concomitant]

REACTIONS (1)
  - AMNESIA [None]
